FAERS Safety Report 22306551 (Version 2)
Quarter: 2023Q2

REPORT INFORMATION
  Report Type: Spontaneous
  Country: NL (occurrence: NL)
  Receive Date: 20230511
  Receipt Date: 20230523
  Transmission Date: 20230722
  Serious: Yes (Hospitalization, Other)
  Sender: FDA-Public Use
  Company Number: None

PATIENT
  Age: 69 Year
  Sex: Male

DRUGS (8)
  1. MYCOPHENOLATE MOFETIL [Interacting]
     Active Substance: MYCOPHENOLATE MOFETIL
     Indication: Prophylaxis against transplant rejection
     Dosage: 750 MILLIGRAM, BID
     Route: 065
  2. ACYCLOVIR [Interacting]
     Active Substance: ACYCLOVIR
     Indication: Meningoencephalitis herpetic
     Dosage: 500 MILLIGRAM, BID
     Route: 065
  3. ACYCLOVIR [Interacting]
     Active Substance: ACYCLOVIR
     Dosage: 400 MILLIGRAM, BID
     Route: 065
  4. ACYCLOVIR [Interacting]
     Active Substance: ACYCLOVIR
     Dosage: 250 MILLIGRAM, BID, ON DAY 5
     Route: 065
  5. ACYCLOVIR [Interacting]
     Active Substance: ACYCLOVIR
     Dosage: 250 MILLIGRAM, BID, ON DAY 7
     Route: 065
  6. ACYCLOVIR [Interacting]
     Active Substance: ACYCLOVIR
     Dosage: 250 MILLIGRAM, BID, ON DAY 10,  0.9
     Route: 065
  7. ACYCLOVIR [Interacting]
     Active Substance: ACYCLOVIR
     Dosage: 250 MILLIGRAM, BID, ON DAY 12
     Route: 065
  8. ACYCLOVIR [Interacting]
     Active Substance: ACYCLOVIR
     Dosage: 10 MILLIGRAM/KILOGRAM, BID
     Route: 065

REACTIONS (7)
  - Myoclonus [Recovered/Resolved]
  - Neurotoxicity [Unknown]
  - Confusional state [Unknown]
  - Meningoencephalitis herpetic [Unknown]
  - Drug interaction [Unknown]
  - Antiviral drug level above therapeutic [Recovered/Resolved]
  - Overdose [Unknown]

NARRATIVE: CASE EVENT DATE: 20210101
